FAERS Safety Report 5372480-9 (Version None)
Quarter: 2007Q2

REPORT INFORMATION
  Report Type: 
  Country: None (occurrence: None)
  Receive Date: 20070620
  Receipt Date: 20070503
  Transmission Date: 20071010
  Serious: No
  Sender: FDA-Public Use
  Company Number: 2007RL000194

PATIENT
  Age: 61 Year
  Sex: Female
  Weight: 50.8029 kg

DRUGS (3)
  1. OMACOR [Suspect]
     Indication: BLOOD CHOLESTEROL INCREASED
     Dosage: 4 MG; QD; PO; 3 GM; QD; PO
     Route: 048
     Dates: start: 20070409, end: 20070401
  2. OMACOR [Suspect]
     Indication: BLOOD CHOLESTEROL INCREASED
     Dosage: 4 MG; QD; PO; 3 GM; QD; PO
     Route: 048
     Dates: start: 20070401, end: 20070420
  3. MANY SUPPLEMENTS NOS [Concomitant]

REACTIONS (6)
  - CONDITION AGGRAVATED [None]
  - FURUNCLE [None]
  - INTENTIONAL DRUG MISUSE [None]
  - OFF LABEL USE [None]
  - PAIN OF SKIN [None]
  - VISION BLURRED [None]
